FAERS Safety Report 5206499-5 (Version None)
Quarter: 2006Q4

REPORT INFORMATION
  Report Type: 
  Country: None (occurrence: None)
  Receive Date: 20061026
  Receipt Date: 20060724
  Transmission Date: 20070319
  Serious: No
  Sender: FDA-Public Use
  Company Number: 2006071181

PATIENT
  Age: 33 Year
  Sex: Male
  Weight: 124.2856 kg

DRUGS (1)
  1. LYRICA [Suspect]
     Indication: COMPLEX REGIONAL PAIN SYNDROME
     Dosage: 150 MG (75 MG, 2 IN 1 D), ORAL
     Route: 048
     Dates: start: 20060501, end: 20060522

REACTIONS (4)
  - MALAISE [None]
  - MUSCLE SPASMS [None]
  - PYREXIA [None]
  - TREMOR [None]
